FAERS Safety Report 4981447-1 (Version None)
Quarter: 2006Q2

REPORT INFORMATION
  Report Type: 
  Country: None (occurrence: None)
  Receive Date: 20060424
  Receipt Date: 20050829
  Transmission Date: 20061013
  Serious: Yes (Hospitalization)
  Sender: FDA-Public Use
  Company Number: US-MERCK-0508USA04595

PATIENT
  Age: 68 Year
  Sex: Female
  Weight: 93 kg

DRUGS (2)
  1. VIOXX [Suspect]
     Indication: ARTHRITIS
     Route: 048
     Dates: start: 19990101, end: 20020919
  2. VIOXX [Suspect]
     Indication: BURSITIS
     Route: 048
     Dates: start: 19990101, end: 20020919

REACTIONS (3)
  - CHEST PAIN [None]
  - FINGER AMPUTATION [None]
  - MYOCARDIAL INFARCTION [None]
